FAERS Safety Report 7178423-X (Version None)
Quarter: 2010Q4

REPORT INFORMATION
  Report Type: 
  Country: None (occurrence: None)
  Receive Date: 20101220
  Receipt Date: 20101209
  Transmission Date: 20110411
  Serious: Yes (Other)
  Sender: FDA-Public Use
  Company Number: KR-ASTRAZENECA-2010SE56657

PATIENT
  Age: 45 Year
  Sex: Female
  Weight: 61 kg

DRUGS (8)
  1. PROPOFOL [Suspect]
     Indication: INDUCTION OF ANAESTHESIA
     Route: 042
  2. ROCURONIUM BROMIDE [Concomitant]
     Indication: INDUCTION OF ANAESTHESIA
     Route: 042
  3. SEVOFLURANE [Concomitant]
     Indication: MAINTENANCE OF ANAESTHESIA
  4. REMIFENTANIL [Concomitant]
     Indication: MAINTENANCE OF ANAESTHESIA
  5. MIDAZOLAM [Concomitant]
     Indication: ANXIOLYTIC THERAPY
     Route: 048
  6. PYRIDOSTIGMINE BROMIDE [Concomitant]
  7. GLYCOPYRROLATE [Concomitant]
     Dosage: 0.4 MG
  8. MUSCLE RELAXANT ANTAGONIST [Concomitant]

REACTIONS (3)
  - CHILLS [None]
  - COMA [None]
  - CONVULSION [None]
